FAERS Safety Report 8740566 (Version 3)
Quarter: 2014Q1

REPORT INFORMATION
  Report Type: Spontaneous
  Country: US (occurrence: US)
  Receive Date: 20120823
  Receipt Date: 20140202
  Transmission Date: 20141002
  Serious: No
  Sender: FDA-Public Use
  Company Number: US-009507513-1208USA007562

PATIENT
  Age: 40 Year
  Sex: Female

DRUGS (2)
  1. SAPHRIS [Suspect]
     Indication: BIPOLAR DISORDER
     Dosage: 5 MG, QD
     Route: 048
  2. LAMICTAL [Concomitant]
     Dosage: 25 MG, HS

REACTIONS (2)
  - Hypoaesthesia [Not Recovered/Not Resolved]
  - Weight increased [Unknown]
